FAERS Safety Report 8816728 (Version 2)
Quarter: 2013Q1

REPORT INFORMATION
  Report Type: Spontaneous
  Country: US (occurrence: None)
  Receive Date: 20121001
  Receipt Date: 20121026
  Transmission Date: 20140127
  Serious: Yes (Other)
  Sender: FDA-Public Use
  Company Number: 2012-00158

PATIENT
  Age: 23 Year
  Sex: Male
  Weight: 81.65 kg

DRUGS (2)
  1. ZICAM EXTREME CONGESTION RELIEF [Suspect]
     Indication: NASOPHARYNGITIS
     Dosage: SPRAYED NASAL 2X EACH
     Dates: start: 20120924
  2. HALLS COUGH DROPS [Concomitant]

REACTIONS (3)
  - Dizziness [None]
  - Blindness transient [None]
  - Tinnitus [None]
